FAERS Safety Report 17505195 (Version 1)
Quarter: 2020Q1

REPORT INFORMATION
  Report Type: Spontaneous
  Country: IT (occurrence: IT)
  Receive Date: 20200306
  Receipt Date: 20200306
  Transmission Date: 20200409
  Serious: Yes (Hospitalization, Other)
  Sender: FDA-Public Use
  Company Number: IT-AUROBINDO-AUR-APL-2020-010435

PATIENT
  Age: 85 Year
  Sex: Female

DRUGS (4)
  1. MICONAZOLE. [Concomitant]
     Active Substance: MICONAZOLE
     Indication: CANDIDA INFECTION
     Dosage: UNK
     Route: 061
  2. PREDNISONE. [Concomitant]
     Active Substance: PREDNISONE
     Indication: RESPIRATORY FAILURE
     Dosage: 5 MILLIGRAM, ONCE A DAY
     Route: 065
  3. FLUCONAZOLE. [Suspect]
     Active Substance: FLUCONAZOLE
     Indication: CANDIDA INFECTION
     Dosage: 400 MILLIGRAM ONCE TOTAL
     Route: 048
  4. ZINC OXIDE. [Concomitant]
     Active Substance: ZINC OXIDE
     Indication: CANDIDA INFECTION
     Dosage: UNK
     Route: 061

REACTIONS (3)
  - Product communication issue [Recovered/Resolved]
  - Jarisch-Herxheimer reaction [Recovered/Resolved]
  - Accidental overdose [Recovered/Resolved]
